FAERS Safety Report 7030673-9 (Version None)
Quarter: 2010Q4

REPORT INFORMATION
  Report Type: 
  Country: None (occurrence: None)
  Receive Date: 20101006
  Receipt Date: 20100924
  Transmission Date: 20110411
  Serious: Yes (Hospitalization, Other)
  Sender: FDA-Public Use
  Company Number: US-PFIZER INC-2009308275

PATIENT
  Sex: Female

DRUGS (4)
  1. TOVIAZ [Suspect]
     Indication: HYPERTONIC BLADDER
     Dosage: 4 MG, 1X/DAY
     Route: 048
     Dates: start: 20091001
  2. TOVIAZ [Suspect]
     Dosage: 8 MG, 1X/DAY
     Route: 048
     Dates: start: 20100101
  3. CALCIUM [Concomitant]
     Dosage: UNK
  4. VITAMIN D [Concomitant]
     Dosage: UNK

REACTIONS (2)
  - BLADDER DISORDER [None]
  - DIVERTICULITIS [None]
